FAERS Safety Report 15652027 (Version 6)
Quarter: 2020Q1

REPORT INFORMATION
  Report Type: Report from Study
  Country: None (occurrence: NL)
  Receive Date: 20181123
  Receipt Date: 20200304
  Transmission Date: 20200409
  Serious: Yes (Other)
  Sender: FDA-Public Use
  Company Number: NL-ABBVIE-18S-114-2563225-00

PATIENT
  Age: 82 Year
  Sex: Male

DRUGS (4)
  1. DUODOPA [Suspect]
     Active Substance: CARBIDOPA\LEVODOPA
     Route: 050
  2. DUODOPA [Suspect]
     Active Substance: CARBIDOPA\LEVODOPA
     Route: 050
  3. DUODOPA [Suspect]
     Active Substance: CARBIDOPA\LEVODOPA
     Indication: PARKINSON^S DISEASE
     Dosage: MD 10.5  CD 3.1 ED 3.0 16 HOUR ADMINISTRATION
     Route: 050
     Dates: start: 20140514
  4. MELATONIN [Concomitant]
     Active Substance: MELATONIN
     Indication: SLEEP DISORDER

REACTIONS (18)
  - Transient ischaemic attack [Recovered/Resolved]
  - Respiratory rate increased [Not Recovered/Not Resolved]
  - Poor quality sleep [Recovered/Resolved]
  - Urinary tract infection [Recovered/Resolved]
  - On and off phenomenon [Unknown]
  - Unevaluable event [Recovered/Resolved]
  - Unevaluable event [Unknown]
  - Muscular weakness [Recovered/Resolved]
  - Freezing phenomenon [Not Recovered/Not Resolved]
  - Abnormal faeces [Not Recovered/Not Resolved]
  - Aphasia [Recovered/Resolved]
  - Speech disorder [Recovered/Resolved]
  - Musculoskeletal disorder [Not Recovered/Not Resolved]
  - Disinhibition [Not Recovered/Not Resolved]
  - Haemoglobin decreased [Not Recovered/Not Resolved]
  - Fall [Not Recovered/Not Resolved]
  - Glucose tolerance impaired [Unknown]
  - Muscle rigidity [Not Recovered/Not Resolved]

NARRATIVE: CASE EVENT DATE: 201809
